FAERS Safety Report 7968727-2 (Version None)
Quarter: 2011Q4

REPORT INFORMATION
  Report Type: 
  Country: None (occurrence: None)
  Receive Date: 20111208
  Receipt Date: 20111121
  Transmission Date: 20120403
  Serious: Yes (Other)
  Sender: FDA-Public Use
  Company Number: COL_10401_2011

PATIENT
  Sex: Female

DRUGS (3)
  1. CHLORHEXIDINE GLUCONATE [Suspect]
     Indication: MUCOSAL INFLAMMATION
     Dosage: ORAL
     Route: 048
     Dates: start: 20110701, end: 20111101
  2. CHLORHEXIDINE GLUCONATE [Suspect]
     Indication: GINGIVITIS
     Dosage: ORAL
     Route: 048
     Dates: start: 20110701, end: 20111101
  3. CHLORHEXIDINE GLUCONATE [Suspect]
     Indication: POSTOPERATIVE WOUND INFECTION
     Dosage: ORAL
     Route: 048
     Dates: start: 20110701, end: 20111101

REACTIONS (3)
  - TOOTHACHE [None]
  - TOOTH ABSCESS [None]
  - FEELING ABNORMAL [None]
